FAERS Safety Report 24842207 (Version 2)
Quarter: 2025Q1

REPORT INFORMATION
  Report Type: Spontaneous
  Country: US (occurrence: US)
  Receive Date: 20250115
  Receipt Date: 20250301
  Transmission Date: 20250408
  Serious: No
  Sender: SANOFI AVENTIS
  Company Number: US-SA-2025SA010871

PATIENT
  Age: 6 Year
  Sex: Female
  Weight: 19.45 kg

DRUGS (6)
  1. DUPIXENT [Suspect]
     Active Substance: DUPILUMAB
     Indication: Eosinophilic oesophagitis
     Dosage: 200 MG, QOW
     Route: 058
     Dates: start: 20240103, end: 20240210
  2. PROBIOTICS NOS [Concomitant]
     Active Substance: PROBIOTICS NOS
  3. OMEGA 3 [Concomitant]
     Active Substance: CAPSAICIN
  4. VITAMIN D3 [Concomitant]
     Active Substance: CHOLECALCIFEROL
  5. VITAMIN C [Concomitant]
     Active Substance: ASCORBIC ACID
  6. VITAMINS [Concomitant]
     Active Substance: VITAMINS

REACTIONS (5)
  - Illness [Unknown]
  - Cough [Recovering/Resolving]
  - Ear pain [Recovering/Resolving]
  - Pyrexia [Recovered/Resolved]
  - Influenza virus test positive [Recovering/Resolving]

NARRATIVE: CASE EVENT DATE: 20250101
